FAERS Safety Report 15205620 (Version 1)
Quarter: 2018Q3

REPORT INFORMATION
  Report Type: Spontaneous
  Country: US (occurrence: US)
  Receive Date: 20180726
  Receipt Date: 20180726
  Transmission Date: 20181010
  Serious: No
  Sender: FDA-Public Use
  Company Number: US-009507513-1806USA011598

PATIENT
  Age: 43 Year
  Sex: Female

DRUGS (1)
  1. SINEMET [Suspect]
     Active Substance: CARBIDOPA\LEVODOPA
     Indication: DYSTONIA
     Route: 048

REACTIONS (1)
  - Product use in unapproved indication [Unknown]
